FAERS Safety Report 4915799-5 (Version None)
Quarter: 2006Q1

REPORT INFORMATION
  Report Type: 
  Country: None (occurrence: None)
  Receive Date: 20060217
  Receipt Date: 20060209
  Transmission Date: 20060701
  Serious: Yes (Other)
  Sender: FDA-Public Use
  Company Number: US-ROCHE-435938

PATIENT
  Age: 75 Year
  Sex: Female
  Weight: 52.2 kg

DRUGS (8)
  1. BONIVA [Suspect]
     Indication: OSTEOPOROSIS
     Route: 048
     Dates: start: 20051102, end: 20060112
  2. HYDROCHLOROTHIAZIDE [Concomitant]
     Indication: HYPERTENSION
  3. PROTONIX [Concomitant]
  4. AMBIEN [Concomitant]
     Indication: INSOMNIA
     Dosage: 5MG QHS, PRN.
  5. FLONASE [Concomitant]
     Route: 055
  6. XANAX [Concomitant]
     Indication: ANXIETY
  7. SINGULAIR [Concomitant]
     Indication: ASTHMA
  8. ALBUTEROL [Concomitant]
     Indication: ASTHMA

REACTIONS (1)
  - DEPRESSED MOOD [None]
